FAERS Safety Report 4501336-6 (Version None)
Quarter: 2004Q3

REPORT INFORMATION
  Report Type: 
  Country: None (occurrence: None)
  Receive Date: 20040928
  Receipt Date: 20040816
  Transmission Date: 20050211
  Serious: No
  Sender: FDA-Public Use
  Company Number: 04P-163-0270741-00

PATIENT
  Age: 53 Year
  Sex: Female
  Weight: 39.9165 kg

DRUGS (5)
  1. HUMIRA [Suspect]
     Indication: RHEUMATOID ARTHRITIS
     Dosage: 40 MG, 1 IN 2 WK, SUBCUTANEOUS
     Route: 058
     Dates: start: 20040601, end: 20040801
  2. CLONAZEPAM [Concomitant]
  3. LEXAPRO [Concomitant]
  4. ZELNORM [Concomitant]
  5. ALENDRONATE SODIUM [Concomitant]

REACTIONS (3)
  - ARTHRALGIA [None]
  - TUBERCULIN TEST POSITIVE [None]
  - WHITE BLOOD CELL COUNT INCREASED [None]
